FAERS Safety Report 20899926 (Version 1)
Quarter: 2022Q2

REPORT INFORMATION
  Report Type: Report from Study
  Country: CA (occurrence: CA)
  Receive Date: 20220601
  Receipt Date: 20220601
  Transmission Date: 20220720
  Serious: Yes (Other)
  Sender: FDA-Public Use
  Company Number: CA-MYLANLABS-2022M1038158

PATIENT
  Age: 61 Year
  Sex: Female

DRUGS (2)
  1. HULIO [Suspect]
     Active Substance: ADALIMUMAB-FKJP
     Indication: Product used for unknown indication
     Dosage: 40 MILLIGRAM, BIWEEKLY (DOSE ESCALATION FROM 40MG SC Q BIWEEKLY TO 40MG SC WEEKLY)
     Route: 058
  2. HULIO [Suspect]
     Active Substance: ADALIMUMAB-FKJP
     Dosage: 40 MILLIGRAM, QW (WEEKLY) (DOSE ESCALATION FROM 40MG SC Q BIWEEKLY TO 40MG SC WEEKLY)
     Route: 058

REACTIONS (2)
  - Rheumatoid arthritis [Unknown]
  - Off label use [Unknown]
